FAERS Safety Report 10457651 (Version 2)
Quarter: 2014Q3

REPORT INFORMATION
  Report Type: Report from Study
  Country: DE (occurrence: DE)
  Receive Date: 20140916
  Receipt Date: 20140916
  Transmission Date: 20150326
  Serious: Yes (Hospitalization, Other)
  Sender: FDA-Public Use
  Company Number: DE-ABBVIE-14P-062-1253828-00

PATIENT
  Age: 72 Year
  Sex: Female
  Weight: 76 kg

DRUGS (12)
  1. HUMIRA [Suspect]
     Active Substance: ADALIMUMAB
     Indication: RHEUMATOID ARTHRITIS
     Route: 058
     Dates: start: 200606
  2. CALCIMAGON D3 [Concomitant]
     Active Substance: CALCIUM\CHOLECALCIFEROL
     Indication: OSTEOPOROSIS
     Dosage: 1-0-1
  3. L-THYROXINE [Concomitant]
     Active Substance: LEVOTHYROXINE
     Indication: POST PROCEDURAL HYPOTHYROIDISM
  4. ENAHEXAL [Concomitant]
     Active Substance: ENALAPRIL MALEATE
     Indication: HYPERTENSION
  5. TOREM [Concomitant]
     Active Substance: TORSEMIDE
     Indication: CARDIAC FAILURE
  6. METOHEXAL [Concomitant]
     Active Substance: METOPROLOL SUCCINATE
     Indication: PRODUCT USED FOR UNKNOWN INDICATION
     Dosage: 1-0-1
  7. HUMIRA [Suspect]
     Active Substance: ADALIMUMAB
     Route: 058
     Dates: end: 20140521
  8. PREDNISOLONE. [Concomitant]
     Active Substance: PREDNISOLONE
     Indication: PRODUCT USED FOR UNKNOWN INDICATION
  9. OMEPRAZOLE. [Concomitant]
     Active Substance: OMEPRAZOLE
     Indication: GASTRITIS PROPHYLAXIS
  10. SIMVASTATIN. [Concomitant]
     Active Substance: SIMVASTATIN
     Indication: HYPERCHOLESTEROLAEMIA
  11. ALLOPURINOL. [Concomitant]
     Active Substance: ALLOPURINOL
     Indication: HYPERURICAEMIA
     Dosage: 0-0-1/2
  12. MONO EMBOLEX [Concomitant]
     Indication: OSTEOPOROSIS
     Dosage: 1-0-1
     Route: 058

REACTIONS (16)
  - Renal cyst [Unknown]
  - Abdominal pain lower [Unknown]
  - Nausea [Unknown]
  - Diverticulitis [Recovered/Resolved]
  - Diverticular perforation [Unknown]
  - Diverticulum intestinal [Recovered/Resolved]
  - Pain [Unknown]
  - Diverticulitis [Unknown]
  - Hepatic steatosis [Unknown]
  - Hip arthroplasty [Unknown]
  - Cholecystectomy [Unknown]
  - Bronchitis [Unknown]
  - Diverticulum intestinal [Recovered/Resolved]
  - Polyarthritis [Unknown]
  - Vulvovaginal mycotic infection [Recovering/Resolving]
  - Vaginal discharge [Unknown]

NARRATIVE: CASE EVENT DATE: 2011
